FAERS Safety Report 15772333 (Version 2)
Quarter: 2019Q1

REPORT INFORMATION
  Report Type: Spontaneous
  Country: DE (occurrence: DE)
  Receive Date: 20181228
  Receipt Date: 20190103
  Transmission Date: 20190417
  Serious: Yes (Death, Other)
  Sender: FDA-Public Use
  Company Number: DE-009507513-1812DEU012195

PATIENT
  Sex: Female

DRUGS (1)
  1. ECURAL MINI [Suspect]
     Active Substance: MOMETASONE
     Dosage: UNK

REACTIONS (1)
  - Death [Fatal]
